FAERS Safety Report 14527540 (Version 1)
Quarter: 2018Q1

REPORT INFORMATION
  Report Type: Spontaneous
  Country: SE (occurrence: SE)
  Receive Date: 20180213
  Receipt Date: 20180213
  Transmission Date: 20180509
  Serious: Yes (Hospitalization)
  Sender: FDA-Public Use
  Company Number: SE-MYLANLABS-2018M1009422

PATIENT
  Age: 32 Year
  Sex: Female
  Weight: 80 kg

DRUGS (18)
  1. LEVAXIN [Concomitant]
     Active Substance: LEVOTHYROXINE SODIUM
     Indication: PRODUCT USED FOR UNKNOWN INDICATION
  2. DIKLOFENAK                         /00372301/ [Concomitant]
     Indication: PRODUCT USED FOR UNKNOWN INDICATION
  3. MILDISON [Concomitant]
     Active Substance: HYDROCORTISONE
     Indication: PRODUCT USED FOR UNKNOWN INDICATION
  4. FOLACIN                            /00024201/ [Concomitant]
     Active Substance: FOLIC ACID
     Indication: PRODUCT USED FOR UNKNOWN INDICATION
  5. NIFEREX                            /00023531/ [Concomitant]
     Indication: PRODUCT USED FOR UNKNOWN INDICATION
  6. PARACETAMOL [Concomitant]
     Active Substance: ACETAMINOPHEN
     Indication: PRODUCT USED FOR UNKNOWN INDICATION
  7. EMOVAT [Concomitant]
     Indication: PRODUCT USED FOR UNKNOWN INDICATION
  8. DIVISUN [Concomitant]
     Indication: PRODUCT USED FOR UNKNOWN INDICATION
  9. EMADINE                            /00972402/ [Concomitant]
     Indication: PRODUCT USED FOR UNKNOWN INDICATION
  10. MINIDERM                           /00021201/ [Concomitant]
     Indication: PRODUCT USED FOR UNKNOWN INDICATION
  11. MOMETASONE [Concomitant]
     Active Substance: MOMETASONE
     Indication: PRODUCT USED FOR UNKNOWN INDICATION
  12. PROPYLESS [Concomitant]
     Indication: PRODUCT USED FOR UNKNOWN INDICATION
  13. SKINOREN [Concomitant]
     Active Substance: AZELAIC ACID
     Indication: PRODUCT USED FOR UNKNOWN INDICATION
  14. PROPYDERM                          /00222401/ [Concomitant]
     Indication: PRODUCT USED FOR UNKNOWN INDICATION
  15. HYDROKORTISON [Concomitant]
     Indication: PRODUCT USED FOR UNKNOWN INDICATION
  16. DESLORATADINE. [Concomitant]
     Active Substance: DESLORATADINE
     Indication: PRODUCT USED FOR UNKNOWN INDICATION
  17. LOMUDAL [Concomitant]
     Indication: PRODUCT USED FOR UNKNOWN INDICATION
     Dosage: UNK
  18. ACETYLCYSTEINE. [Suspect]
     Active Substance: ACETYLCYSTEINE
     Indication: ANALGESIC DRUG LEVEL INCREASED
     Dosage: 150MG/KG, I 250ML 5%GLUKOS UNDER 15 MIN

REACTIONS (2)
  - Pharyngeal oedema [Recovered/Resolved]
  - Dyspnoea [Recovered/Resolved]

NARRATIVE: CASE EVENT DATE: 20180101
